FAERS Safety Report 7110787-5 (Version None)
Quarter: 2010Q4

REPORT INFORMATION
  Report Type: 
  Country: None (occurrence: None)
  Receive Date: 20101118
  Receipt Date: 20101109
  Transmission Date: 20110411
  Serious: Yes (Other)
  Sender: FDA-Public Use
  Company Number: US-ASTRAZENECA-2010SE53612

PATIENT
  Sex: Female

DRUGS (11)
  1. ATENOLOL [Suspect]
  2. LISINOPRIL [Suspect]
     Route: 048
  3. ABILIFY [Concomitant]
     Dosage: ONE TABLET PER DAY
  4. CARBAMAZEPINE [Concomitant]
     Dosage: THREE TABLET PER DAY
  5. GABAPENTIN [Concomitant]
     Dosage: FIVE TABLETS PER DAY
  6. ISOMETH/APAP DICHLO [Concomitant]
     Dosage: AS NEEDED
  7. LAMOTRIGINE [Concomitant]
     Dosage: TWO TABLETS PER DAY
  8. LOSARTAN/HCT [Concomitant]
     Dosage: 100-25,  ONE TABLET PER DAY
  9. PRAMIPEXOLE [Concomitant]
     Dosage: FOUR TABLET PER DAY
  10. SEROQUEL [Concomitant]
     Dosage: THREE TABLETS PER DAY
  11. SIMVASTATIN [Concomitant]
     Dosage: ONE TABLET PER DAY

REACTIONS (2)
  - COMA [None]
  - COUGH [None]
